FAERS Safety Report 7844438-9 (Version None)
Quarter: 2011Q4

REPORT INFORMATION
  Report Type: 
  Country: None (occurrence: None)
  Receive Date: 20111014
  Receipt Date: 20111003
  Transmission Date: 20120403
  Serious: Yes (Hospitalization)
  Sender: FDA-Public Use
  Company Number: WAES 1110USA00232

PATIENT
  Age: 72 Year
  Sex: Female
  Weight: 61.6892 kg

DRUGS (2)
  1. VELCADE [Suspect]
     Dosage: 1.7 MG/DAILY, IV
     Route: 042
     Dates: start: 20110913, end: 20110923
  2. CAP VORINOSTAT 300 MG [Suspect]
     Dosage: 300 MG/DAILY/PO
     Route: 048
     Dates: start: 20110913, end: 20110926

REACTIONS (29)
  - DYSGEUSIA [None]
  - MALNUTRITION [None]
  - LYMPHOMA [None]
  - DEHYDRATION [None]
  - NEURALGIA [None]
  - UNRESPONSIVE TO STIMULI [None]
  - LOSS OF CONSCIOUSNESS [None]
  - HYPOPHAGIA [None]
  - DECREASED APPETITE [None]
  - DIARRHOEA [None]
  - DYSPNOEA EXERTIONAL [None]
  - VOMITING [None]
  - DIZZINESS POSTURAL [None]
  - ABDOMINAL PAIN [None]
  - INTESTINAL OBSTRUCTION [None]
  - LUNG CONSOLIDATION [None]
  - ASTHENIA [None]
  - FATIGUE [None]
  - IMPAIRED WORK ABILITY [None]
  - SYNCOPE [None]
  - FALL [None]
  - CROHN'S DISEASE [None]
  - CONDITION AGGRAVATED [None]
  - DRY MOUTH [None]
  - PNEUMONIA [None]
  - NEUROPATHY PERIPHERAL [None]
  - PYREXIA [None]
  - CONTUSION [None]
  - ACUTE RESPIRATORY FAILURE [None]
